FAERS Safety Report 19521961 (Version 1)
Quarter: 2021Q3

REPORT INFORMATION
  Report Type: Spontaneous
  Country: US (occurrence: US)
  Receive Date: 20210712
  Receipt Date: 20210712
  Transmission Date: 20211014
  Serious: No
  Sender: FDA-Public Use
  Company Number: NVSC2021US146429

PATIENT
  Sex: Female

DRUGS (1)
  1. ENTRESTO [Suspect]
     Active Substance: SACUBITRIL\VALSARTAN
     Indication: BLOOD PRESSURE DIASTOLIC
     Route: 048

REACTIONS (3)
  - Product use in unapproved indication [Unknown]
  - Fluid retention [Unknown]
  - Hypotension [Recovered/Resolved]
